FAERS Safety Report 17167451 (Version 8)
Quarter: 2021Q2

REPORT INFORMATION
  Report Type: Other
  Country: US (occurrence: US)
  Receive Date: 20191217
  Receipt Date: 20210615
  Transmission Date: 20210716
  Serious: Yes (Other)
  Sender: FDA-Public Use
  Company Number: US-ROCHE-2465502

PATIENT
  Age: 63 Year
  Sex: Male
  Weight: 66.74 kg

DRUGS (14)
  1. PULMOZYME [Suspect]
     Active Substance: DORNASE ALFA
     Route: 055
  2. SINUS RINSE [Concomitant]
     Active Substance: SODIUM BICARBONATE\SODIUM CHLORIDE
     Dosage: ADDS BABY SHAMPOO TO IT ;ONGOING: YES
  3. PULMOZYME [Suspect]
     Active Substance: DORNASE ALFA
     Indication: BRONCHIECTASIS
     Dosage: NEBULIZE THE CONTENTS OF 1 VIAL(S) BY MOUTH TWICE A DAY ,THERAPY ONGOING:YES
     Route: 055
  4. PULMOZYME [Suspect]
     Active Substance: DORNASE ALFA
     Route: 065
  5. SODIUM CHLORIDE. [Concomitant]
     Active Substance: SODIUM CHLORIDE
     Indication: CHRONIC SINUSITIS
     Dosage: ONGOING: YES
     Route: 055
     Dates: start: 2018
  6. LEVALBUTEROL. [Concomitant]
     Active Substance: LEVALBUTEROL
     Indication: ASTHMA
     Dosage: ONGOING: YES (0.63 MG IN 3 ML VIAL)
     Route: 055
     Dates: start: 2018
  7. FLECAINIDE [Concomitant]
     Active Substance: FLECAINIDE
     Indication: ATRIAL FIBRILLATION
     Dosage: ONGOING: YES
     Route: 048
  8. SINGULAIR [Concomitant]
     Active Substance: MONTELUKAST SODIUM
     Dosage: ONGOING: YES
     Route: 048
  9. PULMOZYME [Suspect]
     Active Substance: DORNASE ALFA
     Indication: PNEUMONIA
     Dosage: 1 MG/ML (75 ML) ;ONGOING: YES
     Route: 055
     Dates: start: 20190206
  10. PULMOZYME [Suspect]
     Active Substance: DORNASE ALFA
     Dosage: 2.5 MG PER VIAL
     Route: 055
     Dates: start: 201902
  11. VERAPAMIL [Concomitant]
     Active Substance: VERAPAMIL HYDROCHLORIDE
     Dosage: ONGOING: YES
     Route: 048
  12. PULMOZYME [Suspect]
     Active Substance: DORNASE ALFA
     Dosage: NEBULIZE THE CONTENTS OF 1 VIAL(S) TWICE A DAY
     Route: 055
  13. PRAVASTATIN. [Concomitant]
     Active Substance: PRAVASTATIN
     Indication: BLOOD CHOLESTEROL
     Dosage: ONGOING: YES
     Route: 048
  14. BREO ELLIPTA [Concomitant]
     Active Substance: FLUTICASONE FUROATE\VILANTEROL TRIFENATATE
     Indication: ASTHMA
     Dosage: DOSE: 100/25 ;ONGOING: YES
     Route: 055

REACTIONS (8)
  - Brain hypoxia [Unknown]
  - Dry eye [Not Recovered/Not Resolved]
  - Migraine [Not Recovered/Not Resolved]
  - Pulmonary congestion [Not Recovered/Not Resolved]
  - Appetite disorder [Not Recovered/Not Resolved]
  - COVID-19 [Recovered/Resolved]
  - Weight decreased [Not Recovered/Not Resolved]
  - Off label use [Unknown]

NARRATIVE: CASE EVENT DATE: 201902
